FAERS Safety Report 9501273 (Version 4)
Quarter: 2013Q3

REPORT INFORMATION
  Report Type: Spontaneous
  Country: US (occurrence: US)
  Receive Date: 20130905
  Receipt Date: 20130927
  Transmission Date: 20140515
  Serious: No
  Sender: FDA-Public Use
  Company Number: US-009507513-1309USA001654

PATIENT
  Sex: Female

DRUGS (1)
  1. COPPERTONE OIL-FREE FACES LOTION SPF 50+ [Suspect]
     Indication: PRODUCT USED FOR UNKNOWN INDICATION
     Dosage: UNK, UNKNOWN
     Route: 061

REACTIONS (2)
  - Pruritus [Unknown]
  - Adverse reaction [Unknown]
